FAERS Safety Report 20971459 (Version 2)
Quarter: 2022Q2

REPORT INFORMATION
  Report Type: Spontaneous
  Country: US (occurrence: US)
  Receive Date: 20220616
  Receipt Date: 20220629
  Transmission Date: 20220720
  Serious: No
  Sender: FDA-Public Use
  Company Number: US-SA-SAC20220610000910

PATIENT
  Age: 19 Year
  Sex: Female

DRUGS (6)
  1. DUPIXENT [Suspect]
     Active Substance: DUPILUMAB
     Indication: Dermatitis atopic
     Route: 058
     Dates: start: 20210514
  2. VITAMIN B12 [Concomitant]
     Active Substance: CYANOCOBALAMIN
  3. ZYRTEC [Concomitant]
     Active Substance: CETIRIZINE HYDROCHLORIDE
     Dosage: STRENGTH:10 MG
  4. ZYRTEC [Concomitant]
     Active Substance: CETIRIZINE HYDROCHLORIDE
  5. LEVONORGESTREL [Concomitant]
     Active Substance: LEVONORGESTREL
  6. SINGULAIR [Concomitant]
     Active Substance: MONTELUKAST SODIUM

REACTIONS (4)
  - Eczema [Not Recovered/Not Resolved]
  - Product dose omission issue [Unknown]
  - Injection site reaction [Not Recovered/Not Resolved]
  - Dermatitis atopic [Unknown]

NARRATIVE: CASE EVENT DATE: 20220511
